FAERS Safety Report 16886842 (Version 1)
Quarter: 2019Q4

REPORT INFORMATION
  Report Type: Spontaneous
  Country: US (occurrence: US)
  Receive Date: 20191004
  Receipt Date: 20191004
  Transmission Date: 20200122
  Serious: Yes (Hospitalization)
  Sender: FDA-Public Use
  Company Number: US-ASTRAZENECA-2019SF38184

PATIENT
  Sex: Female

DRUGS (1)
  1. BYDUREON BCISE [Suspect]
     Active Substance: EXENATIDE
     Indication: DIABETES MELLITUS
     Route: 058
     Dates: start: 2019

REACTIONS (11)
  - Renal failure [Recovered/Resolved]
  - Sepsis [Unknown]
  - Escherichia infection [Recovered/Resolved]
  - Injection site nodule [Not Recovered/Not Resolved]
  - Laryngitis [Recovering/Resolving]
  - Incorrect dose administered by product [Unknown]
  - Device issue [Unknown]
  - Dizziness [Unknown]
  - Fall [Unknown]
  - Myocardial infarction [Unknown]
  - Renal disorder [Unknown]

NARRATIVE: CASE EVENT DATE: 2019
